FAERS Safety Report 13762193 (Version 1)
Quarter: 2017Q3

REPORT INFORMATION
  Report Type: Spontaneous
  Country: US (occurrence: US)
  Receive Date: 20170718
  Receipt Date: 20170718
  Transmission Date: 20171127
  Serious: Yes (Death, Other)
  Sender: FDA-Public Use
  Company Number: US-STRIDES ARCOLAB LIMITED-2016SP016456

PATIENT

DRUGS (3)
  1. RITUXIMAB. [Suspect]
     Active Substance: RITUXIMAB
     Indication: MYOPATHY
     Dosage: 1000 MG TWO WEEKS APART
  2. MYCOPHENOLATE MOFETIL. [Suspect]
     Active Substance: MYCOPHENOLATE MOFETIL
     Indication: MYOPATHY
     Dosage: 1500 MG, BID
  3. PREDNISOLONE. [Suspect]
     Active Substance: PREDNISOLONE
     Indication: MYOPATHY
     Dosage: 10 MG, QD

REACTIONS (10)
  - Muscular weakness [Unknown]
  - Encephalopathy [Unknown]
  - Confusional state [Unknown]
  - Pyrexia [Unknown]
  - Cerebral toxoplasmosis [Fatal]
  - Vasogenic cerebral oedema [Unknown]
  - Asthenia [Unknown]
  - Leukocytosis [Unknown]
  - Central nervous system lesion [Unknown]
  - Pleocytosis [Unknown]
